FAERS Safety Report 17276683 (Version 2)
Quarter: 2020Q1

REPORT INFORMATION
  Report Type: Spontaneous
  Country: US (occurrence: US)
  Receive Date: 20200116
  Receipt Date: 20200210
  Transmission Date: 20200409
  Serious: No
  Sender: FDA-Public Use
  Company Number: US-VERTEX PHARMACEUTICALS-2020-000251

PATIENT
  Age: 33 Year
  Sex: Female

DRUGS (12)
  1. PULMOZYME [Concomitant]
     Active Substance: DORNASE ALFA
  2. COLISTIMETHATE SODIUM. [Concomitant]
     Active Substance: COLISTIMETHATE SODIUM
  3. CALCIUM CARBONATE. [Concomitant]
     Active Substance: CALCIUM CARBONATE
  4. MEROPENEM. [Concomitant]
     Active Substance: MEROPENEM
  5. MAGNESIUM OXIDE. [Concomitant]
     Active Substance: MAGNESIUM OXIDE
  6. ALBUTEROL SULFATE. [Concomitant]
     Active Substance: ALBUTEROL SULFATE
  7. ACIDOPHILUS [Concomitant]
     Active Substance: LACTOBACILLUS ACIDOPHILUS
  8. BUDESONIDE. [Concomitant]
     Active Substance: BUDESONIDE
  9. CETRIZINE [Concomitant]
     Active Substance: CETIRIZINE HYDROCHLORIDE
  10. TRIKAFTA [Suspect]
     Active Substance: ELEXACAFTOR\IVACAFTOR\TEZACAFTOR
     Indication: CYSTIC FIBROSIS
     Dosage: 2 ORANGE TABS OF ELEXA 100 MG, TEZA 50 MG, IVA 75 MG AM; 1 TAB OF IVA 150 MG PM
     Route: 048
     Dates: start: 20191205
  11. RANITIDINE HCL [Concomitant]
     Active Substance: RANITIDINE HYDROCHLORIDE
  12. CREON [Concomitant]
     Active Substance: PANCRELIPASE AMYLASE\PANCRELIPASE LIPASE\PANCRELIPASE PROTEASE

REACTIONS (2)
  - Initial insomnia [Not Recovered/Not Resolved]
  - Middle insomnia [Not Recovered/Not Resolved]

NARRATIVE: CASE EVENT DATE: 201912
